FAERS Safety Report 19887836 (Version 1)
Quarter: 2021Q3

REPORT INFORMATION
  Report Type: Spontaneous
  Country: CN (occurrence: CN)
  Receive Date: 20210927
  Receipt Date: 20210927
  Transmission Date: 20211014
  Serious: Yes (Hospitalization, Other)
  Sender: FDA-Public Use
  Company Number: CN-PFIZER INC-202101227500

PATIENT
  Age: 83 Year
  Sex: Male
  Weight: 58 kg

DRUGS (1)
  1. LYRICA [Suspect]
     Active Substance: PREGABALIN
     Indication: MUSCULOSKELETAL CHEST PAIN
     Dosage: 75 MG, 2X/DAY
     Route: 048
     Dates: start: 20201007, end: 20210907

REACTIONS (4)
  - Constipation [Recovering/Resolving]
  - Muscular weakness [Unknown]
  - Melaena [Recovering/Resolving]
  - Haematochezia [Recovering/Resolving]

NARRATIVE: CASE EVENT DATE: 20210907
